FAERS Safety Report 5625798-6 (Version None)
Quarter: 2008Q1

REPORT INFORMATION
  Report Type: 
  Country: None (occurrence: None)
  Receive Date: 20080212
  Receipt Date: 20080212
  Transmission Date: 20080703
  Serious: Yes (Other)
  Sender: FDA-Public Use
  Company Number: None

PATIENT
  Age: 65 Year
  Sex: Male
  Weight: 62.1428 kg

DRUGS (1)
  1. SIMVASTATIN [Suspect]
     Indication: BLOOD CHOLESTEROL INCREASED
     Dosage: 1 AT BEDTIME EVERY NIGHT
     Dates: start: 20080105, end: 20080211

REACTIONS (5)
  - ADVERSE DRUG REACTION [None]
  - EAR PAIN [None]
  - HEADACHE [None]
  - MALAISE [None]
  - PAIN IN JAW [None]
